FAERS Safety Report 20502392 (Version 1)
Quarter: 2022Q1

REPORT INFORMATION
  Report Type: Spontaneous
  Country: US (occurrence: None)
  Receive Date: 20220220
  Receipt Date: 20220220
  Transmission Date: 20220423
  Serious: Yes (Disabling)
  Sender: FDA-Public Use
  Company Number: None

PATIENT
  Age: 40 Year
  Sex: Female
  Weight: 67.95 kg

DRUGS (6)
  1. DEBLITANE [Suspect]
     Active Substance: NORETHINDRONE
     Indication: Endometriosis
     Dosage: FREQUENCY : DAILY;?
     Route: 048
     Dates: start: 20220114, end: 20220210
  2. DEBLITANE [Suspect]
     Active Substance: NORETHINDRONE
     Indication: Uterine leiomyoma
  3. DEBLITANE [Suspect]
     Active Substance: NORETHINDRONE
     Indication: Heavy menstrual bleeding
  4. MAGNESIUM [Concomitant]
     Active Substance: MAGNESIUM
  5. VITAMIN D [Concomitant]
     Active Substance: VITAMIN D NOS
  6. ADVIL [Concomitant]
     Active Substance: IBUPROFEN

REACTIONS (10)
  - Condition aggravated [None]
  - Lacrimation increased [None]
  - Fatigue [None]
  - Anxiety [None]
  - Depression [None]
  - Suicidal ideation [None]
  - Pelvic pain [None]
  - Drug ineffective [None]
  - Mental disorder [None]
  - Emotional disorder [None]
